FAERS Safety Report 6211890-4 (Version None)
Quarter: 2009Q2

REPORT INFORMATION
  Report Type: 
  Country: None (occurrence: None)
  Receive Date: 20090529
  Receipt Date: 20090518
  Transmission Date: 20091009
  Serious: Yes (Other)
  Sender: FDA-Public Use
  Company Number: 2009AP002013

PATIENT
  Age: 23 Year

DRUGS (12)
  1. PREDNISOLONE [Suspect]
     Indication: IMMUNOSUPPRESSION
     Dosage: 5 MG; QD
  2. MYCOPHENOLATE MOFETIL [Concomitant]
     Indication: IMMUNOSUPPRESSION
  3. AMOXICILLIN [Concomitant]
  4. VALGANCICLOVIR HCL [Concomitant]
  5. SULFAMETHOXAZOLE AND TRIMETHOPRIM [Concomitant]
  6. TRIMETHOPRIM [Concomitant]
  7. CLAVULANATE POTASSIUM [Concomitant]
  8. CORTICOSTEROIDS [Concomitant]
  9. METHYLPREDNISOLONE [Suspect]
     Indication: IMMUNOSUPPRESSION
     Dosage: 500 MG; 20 MG
  10. TACROLIMUS [Suspect]
     Indication: IMMUNOSUPPRESSION
  11. ALEMTUZUMAB [Suspect]
     Indication: IMMUNOSUPPRESSION
     Dosage: 20 MG
  12. GANICLOVIR [Suspect]
     Indication: ANTIBIOTIC PROPHYLAXIS
     Dosage: 10 MG/KG;QD;IV
     Route: 042

REACTIONS (3)
  - CYTOMEGALOVIRUS INFECTION [None]
  - IMMUNOSUPPRESSION [None]
  - TRANSPLANT REJECTION [None]
